FAERS Safety Report 21200734 (Version 3)
Quarter: 2022Q4

REPORT INFORMATION
  Report Type: Other
  Country: CA (occurrence: None)
  Receive Date: 20220811
  Receipt Date: 20221220
  Transmission Date: 20230113
  Serious: Yes (Death, Hospitalization, Other)
  Sender: FDA-Public Use
  Company Number: CA-ROCHE-3158872

PATIENT
  Age: 71 Year
  Sex: Male

DRUGS (8)
  1. RITUXIMAB [Suspect]
     Active Substance: RITUXIMAB
     Indication: Immunoglobulin G4 related disease
     Dosage: X 2 INDUCTION DOSE
     Route: 042
     Dates: start: 201908
  2. MYCOPHENOLATE MOFETIL [Suspect]
     Active Substance: MYCOPHENOLATE MOFETIL
     Indication: Immunoglobulin G4 related disease
     Route: 048
     Dates: start: 201902
  3. PREDNISONE [Suspect]
     Active Substance: PREDNISONE
     Indication: Immunoglobulin G4 related disease
     Route: 048
     Dates: start: 201808
  4. PREDNISONE [Suspect]
     Active Substance: PREDNISONE
     Route: 048
  5. PREDNISONE [Suspect]
     Active Substance: PREDNISONE
     Route: 048
  6. PREDNISONE [Suspect]
     Active Substance: PREDNISONE
     Route: 048
  7. PREDNISONE [Suspect]
     Active Substance: PREDNISONE
     Route: 048
  8. PREDNISONE [Suspect]
     Active Substance: PREDNISONE
     Route: 048

REACTIONS (6)
  - Disseminated strongyloidiasis [Fatal]
  - Pneumonia aspiration [Fatal]
  - Septic shock [Fatal]
  - Strongyloidiasis [Fatal]
  - Escherichia infection [Unknown]
  - Enterococcal bacteraemia [Unknown]
